FAERS Safety Report 8484227-8 (Version None)
Quarter: 2012Q2

REPORT INFORMATION
  Report Type: 
  Country: None (occurrence: None)
  Receive Date: 20120625
  Receipt Date: 20120608
  Transmission Date: 20120825
  Serious: Yes (Hospitalization, Other)
  Sender: FDA-Public Use
  Company Number: 2012-000925

PATIENT
  Age: 67 Year
  Sex: Female

DRUGS (30)
  1. CENESTIN [Concomitant]
  2. ATROVENT [Concomitant]
  3. MAGNESIUM HYDROXIDE TAB [Concomitant]
  4. DOXYCYCLINE (DOXYCYCLINE) [Concomitant]
  5. FLEXERIL [Concomitant]
  6. VOLTAREN [Concomitant]
  7. AMOXICILLIN [Concomitant]
  8. NYSTATIN [Concomitant]
  9. TRAMADOL HCL [Concomitant]
  10. LEVAQUIN [Concomitant]
  11. LYRICA [Concomitant]
  12. ACTONEL [Suspect]
     Indication: OSTEOPOROSIS
     Dosage: 35 MG ONCE WEEKLY, ORAL
     Route: 048
     Dates: start: 20050406, end: 20091216
  13. SINGULAIR [Concomitant]
  14. MECLIZINE /00072801/ (MECLOZINE) [Concomitant]
  15. TRIAMCINOLONE /00031902/ (TRIAMCINOLONE ACETONIDE) [Concomitant]
  16. GABAPENTIN [Concomitant]
  17. BONIVA [Suspect]
     Dosage: 150 MG MONTHLY, ORAL
     Route: 048
     Dates: start: 20100512, end: 20101006
  18. PREVACID [Concomitant]
  19. DOXEPIN HCL [Concomitant]
  20. PREDNISONE TAB [Concomitant]
  21. ADVAIR HFA [Concomitant]
  22. GLYCOLAX (MACROGOL) [Concomitant]
  23. UREA (UREA) [Concomitant]
  24. MULTIVITAMIN /00097801/ (ASCORBIC ACID, CALCIUM PANTOTHENATE, ERGOCALC [Concomitant]
  25. THEOPHYLLINE [Concomitant]
  26. VYTORIN [Concomitant]
  27. CLARINEX /01202601/ (LORATADINE, PSEUDOEPHEDRINE SULFATE) [Concomitant]
  28. HYDROXYZINE [Concomitant]
  29. FOSAMAX [Suspect]
     Dosage: 70 MG WEEKLY, ORAL
     Route: 048
     Dates: start: 20020127, end: 20030923
  30. HYDRODIURIL [Concomitant]

REACTIONS (7)
  - FRACTURE NONUNION [None]
  - PAIN IN EXTREMITY [None]
  - STRESS FRACTURE [None]
  - MUSCULAR WEAKNESS [None]
  - FEELING ABNORMAL [None]
  - FALL [None]
  - FEMUR FRACTURE [None]
